FAERS Safety Report 15863560 (Version 7)
Quarter: 2019Q2

REPORT INFORMATION
  Report Type: Report from Study
  Country: BR (occurrence: BR)
  Receive Date: 20190124
  Receipt Date: 20190515
  Transmission Date: 20190711
  Serious: Yes (Other)
  Sender: FDA-Public Use
  Company Number: BR-JNJFOC-20190123475

PATIENT
  Age: 61 Year
  Sex: Female

DRUGS (9)
  1. TRAMAL [Concomitant]
     Active Substance: TRAMADOL
     Indication: PAIN
     Route: 065
  2. KETOROLAC [Concomitant]
     Active Substance: KETOROLAC\KETOROLAC TROMETHAMINE
     Route: 065
  3. DEFLAZACORT [Concomitant]
     Active Substance: DEFLAZACORT
     Indication: PAIN
     Route: 065
  4. CALCIUM [Concomitant]
     Active Substance: CALCIUM
     Route: 065
  5. VITAMIN D [Concomitant]
     Active Substance: VITAMIN D NOS
     Route: 065
  6. SIMPONI [Suspect]
     Active Substance: GOLIMUMAB
     Indication: RHEUMATOID ARTHRITIS
     Dosage: DRUG START DATE: BETWEEN THE END OF 2015 AND BEGINNING OF 2016.
     Route: 058
     Dates: start: 2017
  7. LISADOR [Concomitant]
     Active Substance: DIPYRONE\PROMETHAZINE HYDROCHLORIDE
     Indication: PAIN
     Route: 065
  8. SIMPONI [Suspect]
     Active Substance: GOLIMUMAB
     Indication: RHEUMATOID ARTHRITIS
     Route: 058
     Dates: start: 2016
  9. PACO [Concomitant]
     Active Substance: ACETAMINOPHEN\CODEINE PHOSPHATE
     Indication: PAIN
     Route: 065

REACTIONS (7)
  - Product dose omission [Unknown]
  - Anxiety [Unknown]
  - Therapeutic response decreased [Unknown]
  - Rheumatoid arthritis [Recovering/Resolving]
  - Sepsis [Not Recovered/Not Resolved]
  - Influenza [Unknown]
  - Nervousness [Unknown]

NARRATIVE: CASE EVENT DATE: 2018
